FAERS Safety Report 5615717-0 (Version None)
Quarter: 2008Q1

REPORT INFORMATION
  Report Type: 
  Country: None (occurrence: None)
  Receive Date: 20080206
  Receipt Date: 20080128
  Transmission Date: 20080703
  Serious: Yes (Other)
  Sender: FDA-Public Use
  Company Number: US-JNJFOC-20071007290

PATIENT
  Sex: Male
  Weight: 99.79 kg

DRUGS (4)
  1. RISPERDAL CONSTA [Suspect]
     Indication: SCHIZOPHRENIA
     Route: 030
  2. EFFEXOR XR [Suspect]
     Indication: DRUG USE FOR UNKNOWN INDICATION
  3. LISINOPRIL [Concomitant]
  4. DICLOXACILLIN [Concomitant]

REACTIONS (1)
  - PLATELET COUNT DECREASED [None]
